FAERS Safety Report 4829232-5 (Version None)
Quarter: 2005Q4

REPORT INFORMATION
  Report Type: 
  Country: None (occurrence: None)
  Receive Date: 20051028
  Receipt Date: 20050803
  Transmission Date: 20060501
  Serious: No
  Sender: FDA-Public Use
  Company Number: COT_0213_2005

PATIENT
  Age: 44 Year
  Sex: Female
  Weight: 54.4316 kg

DRUGS (4)
  1. VENTAVIS [Suspect]
     Indication: PULMONARY HYPERTENSION
     Dosage: 5 MCG VARIABLE IH
     Route: 055
  2. SILDENAFIL [Concomitant]
  3. ALDACTONE [Concomitant]
  4. TORSEMIDE [Concomitant]

REACTIONS (2)
  - CHEST PAIN [None]
  - MIGRAINE [None]
